FAERS Safety Report 13079990 (Version 2)
Quarter: 2017Q1

REPORT INFORMATION
  Report Type: Spontaneous
  Country: FR (occurrence: FR)
  Receive Date: 20170103
  Receipt Date: 20170215
  Transmission Date: 20170428
  Serious: Yes (Disabling)
  Sender: FDA-Public Use
  Company Number: FR-ROCHE-1874062

PATIENT
  Age: 48 Year
  Sex: Female

DRUGS (5)
  1. MABTHERA [Suspect]
     Active Substance: RITUXIMAB
     Indication: B-CELL LYMPHOMA
     Dosage: CUMULATIVE DOSE
     Route: 058
     Dates: start: 20130426, end: 201308
  2. VINCRISTINE TEVA [Suspect]
     Active Substance: VINCRISTINE
     Indication: B-CELL LYMPHOMA
     Dosage: CUMULATIVE DOSE
     Route: 041
     Dates: start: 20130426, end: 201308
  3. DOXORUBICINE ACCORD [Suspect]
     Active Substance: DOXORUBICIN
     Indication: B-CELL LYMPHOMA
     Dosage: CUMULATIVE DOSE
     Route: 041
     Dates: start: 20130426, end: 201308
  4. ENDOXAN [Suspect]
     Active Substance: CYCLOPHOSPHAMIDE
     Indication: B-CELL LYMPHOMA
     Dosage: CUMULATIVE DOSE
     Route: 041
     Dates: start: 20130426, end: 201308
  5. CORTANCYL [Suspect]
     Active Substance: PREDNISONE
     Indication: B-CELL LYMPHOMA
     Dosage: CUMULATIVE DOSE
     Route: 048
     Dates: start: 20130426, end: 201308

REACTIONS (1)
  - Non-obstructive cardiomyopathy [Not Recovered/Not Resolved]

NARRATIVE: CASE EVENT DATE: 201310
